FAERS Safety Report 4684408-5 (Version None)
Quarter: 2005Q2

REPORT INFORMATION
  Report Type: 
  Country: None (occurrence: None)
  Receive Date: 20050531
  Receipt Date: 20040505
  Transmission Date: 20051028
  Serious: Yes (Death)
  Sender: FDA-Public Use
  Company Number: 200413462US

PATIENT
  Age: 50 Year
  Sex: Female
  Weight: 150 kg

DRUGS (2)
  1. LOVENOX [Suspect]
     Dosage: 150 MG BID
  2. WARFARIN SODIUM [Concomitant]

REACTIONS (4)
  - CARDIAC ARREST [None]
  - INTERNATIONAL NORMALISED RATIO DECREASED [None]
  - PERICARDIAL HAEMORRHAGE [None]
  - PULMONARY HAEMORRHAGE [None]
